FAERS Safety Report 4792658-2 (Version None)
Quarter: 2005Q4

REPORT INFORMATION
  Report Type: 
  Country: None (occurrence: None)
  Receive Date: 20051010
  Receipt Date: 20050928
  Transmission Date: 20060501
  Serious: Yes (Other)
  Sender: FDA-Public Use
  Company Number: PHBS2005CL14338

PATIENT
  Age: 32 Year
  Sex: Female

DRUGS (9)
  1. LISURIDE [Concomitant]
     Dosage: 0.8 MG, QD
  2. QUINAGOLIDE [Concomitant]
  3. CABERGOLINE [Concomitant]
  4. ESTRADIOL VALERATE [Concomitant]
     Dosage: 2 MG, QD
  5. NOMEGESTROL [Concomitant]
     Dosage: 5 MG, QD
  6. TAMOXIFEN CITRATE [Concomitant]
     Dosage: 20 MG, QD
  7. BROMOCRIPTINE MESYLATE [Suspect]
     Indication: HYPERPROLACTINAEMIA
     Dosage: 15 MG, QD
  8. BROMOCRIPTINE MESYLATE [Suspect]
     Dosage: 5 MG, QD
  9. BROMOCRIPTINE MESYLATE [Suspect]
     Dosage: 7.5 MG, QD

REACTIONS (8)
  - ABDOMINAL PAIN [None]
  - BLOOD FOLLICLE STIMULATING HORMONE INCREASED [None]
  - BLOOD PROLACTIN INCREASED [None]
  - DRUG RESISTANCE [None]
  - MALAISE [None]
  - NAUSEA [None]
  - OESTRADIOL INCREASED [None]
  - OVARIAN HYPERSTIMULATION SYNDROME [None]
